FAERS Safety Report 13628206 (Version 3)
Quarter: 2017Q3

REPORT INFORMATION
  Report Type: Spontaneous
  Country: FR (occurrence: FR)
  Receive Date: 20170608
  Receipt Date: 20170825
  Transmission Date: 20171127
  Serious: Yes (Death, Hospitalization)
  Sender: FDA-Public Use
  Company Number: FR-SA-2017SA101133

PATIENT
  Age: 66 Year
  Sex: Male

DRUGS (22)
  1. COZAAR [Concomitant]
     Active Substance: LOSARTAN POTASSIUM
  2. JEVTANA [Suspect]
     Active Substance: CABAZITAXEL
     Indication: PROSTATE CANCER METASTATIC
     Dosage: FREQUENCY 1 IN 21 DAYS
     Route: 042
     Dates: start: 20170328, end: 20170328
  3. JEVTANA [Suspect]
     Active Substance: CABAZITAXEL
     Indication: PROSTATE CANCER METASTATIC
     Dosage: FREQUENCY 1 IN 21 DAYS
     Route: 042
     Dates: start: 20170711, end: 20170711
  4. DOCETAXEL. [Suspect]
     Active Substance: DOCETAXEL
     Indication: PROSTATE CANCER METASTATIC
     Route: 042
     Dates: start: 20170110, end: 20170110
  5. LASILIX [Concomitant]
     Active Substance: FUROSEMIDE
  6. VERSATIS [Concomitant]
     Active Substance: LIDOCAINE
  7. MOVICOL [Concomitant]
     Active Substance: POLYETHYLENE GLYCOL 3350\POTASSIUM CHLORIDE\SODIUM BICARBONATE\SODIUM CHLORIDE
  8. JEVTANA [Suspect]
     Active Substance: CABAZITAXEL
     Indication: PROSTATE CANCER METASTATIC
     Dosage: FREQUENCY 1 IN 21 DAYS
     Route: 042
     Dates: start: 20170307, end: 20170307
  9. JEVTANA [Suspect]
     Active Substance: CABAZITAXEL
     Indication: PROSTATE CANCER METASTATIC
     Dosage: FREQUENCY 1 IN 21 DAYS
     Route: 042
     Dates: start: 20170509, end: 20170509
  10. KARDEGIC [Concomitant]
     Active Substance: ASPIRIN LYSINE
  11. METFORMIN [Concomitant]
     Active Substance: METFORMIN HYDROCHLORIDE
  12. INEXIUM [Concomitant]
     Active Substance: ESOMEPRAZOLE
  13. PAROXETINE. [Concomitant]
     Active Substance: PAROXETINE
  14. JEVTANA [Suspect]
     Active Substance: CABAZITAXEL
     Indication: PROSTATE CANCER METASTATIC
     Dosage: FREQUENCY 1 IN 21 DAYS
     Route: 042
     Dates: start: 20170620, end: 20170620
  15. JEVTANA [Suspect]
     Active Substance: CABAZITAXEL
     Indication: PROSTATE CANCER METASTATIC
     Dosage: FREQUENCY 1 IN 21 DAYS
     Route: 042
     Dates: start: 20170718, end: 20170718
  16. ZOLPIDEM [Concomitant]
     Active Substance: ZOLPIDEM\ZOLPIDEM TARTRATE
  17. JEVTANA [Suspect]
     Active Substance: CABAZITAXEL
     Indication: PROSTATE CANCER METASTATIC
     Dosage: FREQUENCY 1 IN 21 DAYS
     Route: 042
     Dates: start: 20170418, end: 20170418
  18. JEVTANA [Suspect]
     Active Substance: CABAZITAXEL
     Indication: PROSTATE CANCER METASTATIC
     Dosage: FREQUENCY 1 IN 21 DAYS
     Route: 042
     Dates: start: 20170627, end: 20170627
  19. DOCETAXEL. [Suspect]
     Active Substance: DOCETAXEL
     Indication: PROSTATE CANCER METASTATIC
     Route: 042
     Dates: start: 20160701, end: 20160701
  20. SOLUPRED [Concomitant]
     Active Substance: PREDNISOLONE
     Route: 065
  21. DOCETAXEL. [Suspect]
     Active Substance: DOCETAXEL
     Indication: PROSTATE CANCER METASTATIC
     Route: 042
     Dates: start: 20170307, end: 20170307
  22. DOLIPRANE [Concomitant]
     Active Substance: ACETAMINOPHEN

REACTIONS (2)
  - Myocardial ischaemia [Recovered/Resolved with Sequelae]
  - Cardiac failure [Not Recovered/Not Resolved]

NARRATIVE: CASE EVENT DATE: 201705
